FAERS Safety Report 8967081 (Version 1)
Quarter: 2012Q4

REPORT INFORMATION
  Report Type: Report from Study
  Country: DE (occurrence: DE)
  Receive Date: 20121214
  Receipt Date: 20121214
  Transmission Date: 20130627
  Serious: Yes (Life-Threatening, Hospitalization)
  Sender: FDA-Public Use
  Company Number: DE-NAPPMUNDI-DEU-2012-0009978

PATIENT
  Age: 65 Year
  Sex: Male
  Weight: 66.4 kg

DRUGS (38)
  1. MST [Suspect]
     Indication: PAIN
     Dosage: UNK UNK, tid
     Route: 065
     Dates: start: 20071212
  2. MST [Suspect]
     Dosage: 30 mg, tid
     Route: 065
     Dates: start: 20071102
  3. MST [Suspect]
     Dosage: 40 mg, tid
     Route: 065
     Dates: start: 20071101, end: 20071101
  4. MST [Suspect]
     Dosage: 50 mg, daily
     Route: 065
     Dates: start: 20071031, end: 20071031
  5. MST [Suspect]
     Dosage: 40 mg, bid
     Route: 065
     Dates: start: 20071030, end: 20071031
  6. MST [Suspect]
     Dosage: 30 mg, tid
     Route: 065
     Dates: start: 20071027, end: 20071029
  7. BEVACIZUMAB [Suspect]
     Indication: NON-SMALL CELL LUNG CANCER
     Dosage: 15 mg/kg, UNK
     Route: 042
     Dates: start: 20071106
  8. BEVACIZUMAB [Suspect]
     Dosage: 15 mg/kg, UNK
     Route: 042
     Dates: start: 20070831, end: 20071003
  9. CARBOPLATIN [Concomitant]
     Dosage: UNK
     Dates: start: 20070831
  10. ASS [Concomitant]
  11. QUERTO [Concomitant]
     Dosage: 12.5 mg, UNK
     Dates: start: 20070726, end: 20070809
  12. QUERTO [Concomitant]
     Dosage: 25 mg, UNK
     Dates: start: 20071027
  13. NOVODIGAL                          /00017701/ [Concomitant]
     Dosage: 0.2 mg, daily
     Dates: start: 20071027
  14. ESIDRIX [Concomitant]
     Dosage: 25 mg, UNK
     Dates: start: 20070726, end: 20070809
  15. VOLTAREN RESINAT [Concomitant]
     Dosage: UNK
     Dates: start: 20070726, end: 20070809
  16. PANTOPRAZOLE [Concomitant]
     Dosage: 40 mg, UNK
     Dates: start: 200708
  17. SPIRIVA [Concomitant]
     Dosage: UNK
     Dates: start: 200708
  18. CARVEDILOL [Concomitant]
     Dosage: 25 mg, UNK
  19. TORASEMIDE [Concomitant]
     Dosage: UNK
     Dates: start: 20070827
  20. MOVICOL                            /01625101/ [Concomitant]
     Dosage: UNK
     Dates: start: 20070924
  21. IBUPROFEN [Concomitant]
  22. ZOMETA [Concomitant]
     Dosage: UNK
     Route: 042
     Dates: start: 20070827
  23. KEVATRIL [Concomitant]
  24. NOVALGINA [Concomitant]
  25. IBUHEXAL                           /00109201/ [Concomitant]
  26. ZOFRAN                             /00955301/ [Concomitant]
  27. FRESUBIN [Concomitant]
  28. ARANESP [Concomitant]
  29. NOVALGIN                           /00169801/ [Concomitant]
  30. PERIPLASMAL [Concomitant]
  31. FRAGMIN P [Concomitant]
  32. LASIX                              /00032601/ [Concomitant]
  33. SAROTEN [Concomitant]
  34. BIFITERAL [Concomitant]
  35. PANOTOS [Concomitant]
  36. VOLTAROL [Concomitant]
  37. FORTECORTIN                        /00016001/ [Concomitant]
  38. GEMCITABINE [Concomitant]

REACTIONS (2)
  - Overdose [Recovered/Resolved]
  - Fatigue [Not Recovered/Not Resolved]
